FAERS Safety Report 7674454-1 (Version None)
Quarter: 2011Q3

REPORT INFORMATION
  Report Type: 
  Country: None (occurrence: None)
  Receive Date: 20110810
  Receipt Date: 20110804
  Transmission Date: 20111222
  Serious: Yes (Other)
  Sender: FDA-Public Use
  Company Number: BR-ROCHE-602286

PATIENT
  Sex: Male
  Weight: 61 kg

DRUGS (5)
  1. CLONAZEPAM [Suspect]
     Indication: ANXIETY
     Dosage: OTHER INDICATIONS: DEPRESSION AND NERVOUSNESS
     Route: 048
     Dates: start: 20030311, end: 20060101
  2. CLONAZEPAM [Suspect]
     Dosage: LOT NO. RJ0932; MANUFACTURED DATE:SEPTEMBER 2008; EXPIRY DATE:SEPTEMBER 2011
     Route: 048
     Dates: start: 20060101
  3. ALPRAZOLAM [Suspect]
     Route: 065
  4. EXFORGE [Concomitant]
     Indication: HYPERTENSION
  5. ABLOK [Concomitant]
     Indication: HYPERTENSION

REACTIONS (10)
  - AGITATION [None]
  - DRUG INEFFECTIVE [None]
  - ANXIETY [None]
  - GASTRITIS [None]
  - MOVEMENT DISORDER [None]
  - CATARACT [None]
  - PANIC ATTACK [None]
  - SEDATION [None]
  - PHOBIA [None]
  - DRUG DEPENDENCE [None]
